FAERS Safety Report 7245307-8 (Version None)
Quarter: 2011Q1

REPORT INFORMATION
  Report Type: 
  Country: None (occurrence: None)
  Receive Date: 20110126
  Receipt Date: 20110113
  Transmission Date: 20110831
  Serious: Yes (Other)
  Sender: FDA-Public Use
  Company Number: US-ROCHE-745047

PATIENT
  Sex: Female

DRUGS (17)
  1. FUROSEMIDE [Concomitant]
  2. GLIPIZIDE [Concomitant]
  3. JANUVIA [Concomitant]
  4. SYSTANE EYE DROPS [Concomitant]
  5. LUTENYL [Concomitant]
  6. ACTOS [Concomitant]
  7. FISH OIL [Concomitant]
  8. BONIVA [Suspect]
     Route: 065
  9. SPIRONOLACTONE [Concomitant]
  10. CALCIUM [Concomitant]
  11. METOPROLOL [Concomitant]
  12. HYDRALAZINE HCL [Concomitant]
  13. ALLEGRA [Concomitant]
  14. CODEINE SUL TAB [Concomitant]
  15. LIPITOR [Concomitant]
  16. OMEPRAZOLE [Concomitant]
  17. ADVAIR [Concomitant]
     Dosage: DOSE: 250/50 MG TWICE A DAY

REACTIONS (2)
  - TOOTH LOSS [None]
  - BONE DISORDER [None]
